FAERS Safety Report 5621953-X (Version None)
Quarter: 2008Q1

REPORT INFORMATION
  Report Type: 
  Country: None (occurrence: None)
  Receive Date: 20080211
  Receipt Date: 20080206
  Transmission Date: 20080703
  Serious: Yes (Hospitalization)
  Sender: FDA-Public Use
  Company Number: A0708769A

PATIENT
  Age: 71 Year
  Sex: Male
  Weight: 94 kg

DRUGS (4)
  1. VALACYCLOVIR [Suspect]
     Route: 048
  2. BACTRIM [Suspect]
     Indication: DRUG USE FOR UNKNOWN INDICATION
  3. TEMOZOLOMIDE [Suspect]
     Indication: GLIOBLASTOMA MULTIFORME
     Dosage: 165MG PER DAY
     Dates: start: 20071030, end: 20071213
  4. RADIATION [Suspect]
     Indication: GLIOBLASTOMA MULTIFORME
     Dosage: 30GY SINGLE DOSE
     Dates: start: 20071030, end: 20071030

REACTIONS (8)
  - ANAEMIA [None]
  - HAEMOGLOBIN DECREASED [None]
  - HAEMOPTYSIS [None]
  - LYMPHOPENIA [None]
  - PLATELET COUNT DECREASED [None]
  - PULMONARY EMBOLISM [None]
  - PULMONARY HAEMORRHAGE [None]
  - THROMBOCYTOPENIA [None]
